FAERS Safety Report 5903080-7 (Version None)
Quarter: 2008Q3

REPORT INFORMATION
  Report Type: 
  Country: None (occurrence: None)
  Receive Date: 20080930
  Receipt Date: 20080922
  Transmission Date: 20090109
  Serious: Yes (Hospitalization)
  Sender: FDA-Public Use
  Company Number: KR-ROCHE-585481

PATIENT
  Sex: Male
  Weight: 52.3 kg

DRUGS (40)
  1. CAPECITABINE [Suspect]
     Dosage: DAYS 1 TO 14, EVERY 3 WEEKS
     Route: 048
     Dates: start: 20080506
  2. CAPECITABINE [Suspect]
     Dosage: DAYS 1 TO 14, EVERY 3 WEEKS.
     Route: 048
     Dates: start: 20080619, end: 20080807
  3. CAPECITABINE [Suspect]
     Dosage: DAYS 1 TO 14, EVERY 3 WEEKS. TEMPORARILY INTERRUPTED
     Route: 048
     Dates: end: 20080908
  4. BLINDED BEVACIZUMAB [Suspect]
     Dosage: FREQUENCY REPORTED AS 3/52
     Route: 042
     Dates: start: 20080506
  5. BLINDED BEVACIZUMAB [Suspect]
     Dosage: DAY 1, EVERY 3 WEEKS. DOSE FORM: INFUSION TEMPORARILY INTURRUPTED
     Route: 042
     Dates: start: 20080619, end: 20080908
  6. CISPLATIN [Suspect]
     Dosage: FREQUENCY REPORTED AS 3/52
     Route: 042
     Dates: start: 20080506
  7. CISPLATIN [Suspect]
     Dosage: DAY 1, EVERY 3 WEEKS. DOSE FORM: INFUSION
     Route: 042
     Dates: start: 20080619
  8. CISPLATIN [Suspect]
     Dosage: FORM: INFUSION
     Route: 042
  9. CISPLATIN [Suspect]
     Dosage: DAY 1, EVERY 3 WEEKS. DOSE FORM: INFUSION TEMPORARILY INTURUPTED
     Route: 042
     Dates: end: 20080908
  10. OXYCONTIN [Concomitant]
     Dates: start: 20080101
  11. OXYCONTIN [Concomitant]
     Dates: start: 20080630
  12. OXYCONTIN [Concomitant]
     Dates: start: 20080906
  13. LIPITOR [Concomitant]
     Dates: start: 20000101
  14. CELEBREX [Concomitant]
     Dates: start: 20080101
  15. ZOLPIDEM [Concomitant]
     Dates: start: 20080101
  16. NEXIUM [Concomitant]
     Dates: start: 20080513
  17. ORDINE [Concomitant]
     Dates: start: 20080101
  18. ORDINE [Concomitant]
     Dates: start: 20080703, end: 20080703
  19. ORDINE [Concomitant]
     Dates: start: 20080905
  20. MOVICOL [Concomitant]
     Dates: start: 20080101
  21. LARGACTIL [Concomitant]
     Dates: start: 20080517
  22. ZOFRAN [Concomitant]
     Dates: start: 20080621
  23. MAGNESIUM OXIDE [Concomitant]
     Dates: start: 20080703, end: 20080703
  24. CODEINE PHOSPHATE/IBUPROFEN [Concomitant]
     Dosage: TDD: 3T, DRUG: CODEIN, AAP, IBUPROFEN.
     Dates: start: 20080703, end: 20080704
  25. BISACODYL [Concomitant]
     Dosage: TDD: 2T, DRUG: BISACODYL INS ANUS
     Dates: start: 20080703, end: 20080721
  26. LACTULOSE [Concomitant]
     Dates: start: 20080630
  27. LACTULOSE [Concomitant]
     Dates: start: 20080906, end: 20080906
  28. METOCLOPRAMIDE [Concomitant]
     Dates: start: 20080630
  29. METOCLOPRAMIDE [Concomitant]
     Dates: start: 20080919
  30. FENTANYL TRANSDERMAL SYSTEM [Concomitant]
     Dates: start: 20080616
  31. CEFODOX [Concomitant]
     Dates: start: 20080709, end: 20080714
  32. DEXAMETHASONE [Concomitant]
     Dates: start: 20080619
  33. GRANISETRON [Concomitant]
     Dates: start: 20080619
  34. GRANISETRON [Concomitant]
     Dates: start: 20080620
  35. MORPHINE HCL ELIXIR [Concomitant]
     Dates: start: 20080905
  36. OXYCODONE HCL [Concomitant]
     Dates: start: 20080619
  37. PHAZYME [Concomitant]
     Dosage: DRUG NAME REPORTED AS PHAZYME COMP
     Dates: start: 20080904
  38. METRONIDAZOLE [Concomitant]
     Route: 048
     Dates: start: 20080918
  39. CEFOTAXIME SODIUM [Concomitant]
     Route: 048
     Dates: start: 20080918
  40. HARTMANN'S/5% DEXTROSE [Concomitant]
     Dosage: DRUG NAME REPORTED AS HARTMAN
     Dates: start: 20080919, end: 20080919

REACTIONS (1)
  - GASTRIC PERFORATION [None]
